FAERS Safety Report 10554306 (Version 2)
Quarter: 2014Q4

REPORT INFORMATION
  Report Type: Spontaneous
  Country: US (occurrence: US)
  Receive Date: 20141030
  Receipt Date: 20141030
  Transmission Date: 20150529
  Serious: Yes (Death, Hospitalization, Other)
  Sender: FDA-Public Use
  Company Number: US-GLAXOSMITHKLINE-A0865372A

PATIENT
  Sex: Male

DRUGS (1)
  1. AVANDIA [Suspect]
     Active Substance: ROSIGLITAZONE MALEATE
     Indication: DIABETES MELLITUS
     Dosage: 08 MG, QD
     Route: 048
     Dates: start: 200109, end: 200408

REACTIONS (4)
  - Myocardial infarction [Unknown]
  - Coronary artery disease [Unknown]
  - Pleural effusion [Unknown]
  - Cardiac failure congestive [Fatal]
